FAERS Safety Report 18423443 (Version 1)
Quarter: 2020Q4

REPORT INFORMATION
  Report Type: Spontaneous
  Country: FR (occurrence: FR)
  Receive Date: 20201023
  Receipt Date: 20201023
  Transmission Date: 20210114
  Serious: Yes (Hospitalization)
  Sender: FDA-Public Use
  Company Number: FR-009507513-2010FRA004997

PATIENT
  Age: 62 Year
  Sex: Female

DRUGS (1)
  1. LIPTRUZET [Suspect]
     Active Substance: ATORVASTATIN CALCIUM\EZETIMIBE
     Indication: HYPERCHOLESTEROLAEMIA
     Dosage: 1 DOSAGE FORM
     Route: 048
     Dates: end: 20200821

REACTIONS (1)
  - Inclusion body myositis [Recovering/Resolving]

NARRATIVE: CASE EVENT DATE: 20200717
